FAERS Safety Report 5386915-9 (Version None)
Quarter: 2007Q3

REPORT INFORMATION
  Report Type: 
  Country: None (occurrence: None)
  Receive Date: 20070713
  Receipt Date: 20070702
  Transmission Date: 20080115
  Serious: Yes (Other)
  Sender: FDA-Public Use
  Company Number: GB-PFIZER INC-2007053655

PATIENT
  Age: 73 Year
  Sex: Male
  Weight: 90 kg

DRUGS (5)
  1. CARDURA [Suspect]
     Indication: HYPERTENSION
     Dosage: DAILY DOSE:4MG-TEXT:EVERY DAY
  2. AMLODIPINE [Concomitant]
  3. TAMSULOSIN HCL [Concomitant]
  4. DUTASTERIDE [Concomitant]
  5. LOSARTAN POTASSIUM [Concomitant]

REACTIONS (4)
  - BLOOD URINE PRESENT [None]
  - DYSURIA [None]
  - INCONTINENCE [None]
  - OEDEMA PERIPHERAL [None]
